FAERS Safety Report 20607722 (Version 2)
Quarter: 2022Q1

REPORT INFORMATION
  Report Type: Spontaneous
  Country: IT (occurrence: IT)
  Receive Date: 20220317
  Receipt Date: 20220331
  Transmission Date: 20220424
  Serious: Yes (Other)
  Sender: FDA-Public Use
  Company Number: IT-TEVA-2022-IT-2016718

PATIENT
  Age: 44 Year
  Sex: Female

DRUGS (16)
  1. CARBOPLATIN [Suspect]
     Active Substance: CARBOPLATIN
     Indication: Ovarian cancer stage IV
     Route: 065
  2. CARBOPLATIN [Suspect]
     Active Substance: CARBOPLATIN
     Indication: BRCA1 gene mutation
  3. GEMCITABINE [Suspect]
     Active Substance: GEMCITABINE
     Indication: Ovarian cancer stage IV
     Dosage: ADMINISTERED AS A RECHALLENGE THERAPY
     Route: 065
  4. GEMCITABINE [Suspect]
     Active Substance: GEMCITABINE
     Indication: BRCA1 gene mutation
     Dosage: 1000 MG/MQ Q14
     Route: 065
  5. TRABECTEDIN [Suspect]
     Active Substance: TRABECTEDIN
     Indication: Ovarian cancer stage IV
     Dosage: FOR A TOTAL OF 6 CYCLES, 1.3 MG/M2 ONCE IN EVERY 3 WEEKS
     Route: 065
     Dates: start: 201702
  6. TRABECTEDIN [Suspect]
     Active Substance: TRABECTEDIN
     Indication: BRCA1 gene mutation
     Dosage: ADMINISTERED AT A REDUCED DOSAGE OF 75% OF THE ENTIRE DOSAGE AFTER THE THIRD CYCLE
     Route: 065
  7. OLAPARIB [Suspect]
     Active Substance: OLAPARIB
     Indication: Ovarian cancer stage IV
     Dosage: 800 MILLIGRAM DAILY;
     Route: 065
  8. OLAPARIB [Suspect]
     Active Substance: OLAPARIB
     Indication: BRCA1 gene mutation
     Dosage: 400 MILLIGRAM DAILY;
     Route: 065
  9. OLAPARIB [Suspect]
     Active Substance: OLAPARIB
     Dosage: 200 MILLIGRAM DAILY;
     Route: 065
  10. LURBINECTEDIN [Suspect]
     Active Substance: LURBINECTEDIN
     Indication: Ovarian cancer stage IV
     Dosage: 3.2 MG/MQ Q21
     Route: 065
     Dates: start: 202005
  11. LURBINECTEDIN [Suspect]
     Active Substance: LURBINECTEDIN
     Indication: BRCA1 gene mutation
     Dosage: ADMINISTERED AT A REDUCED DOSAGE OF 75% OF THE ENTIRE DOSAGE
     Route: 065
  12. LURBINECTEDIN [Suspect]
     Active Substance: LURBINECTEDIN
     Dosage: 2 MG/MQ DAY 1 Q21
     Route: 065
     Dates: end: 202102
  13. DOXORUBICIN HYDROCHLORIDE [Concomitant]
     Active Substance: DOXORUBICIN HYDROCHLORIDE
     Indication: Ovarian cancer stage IV
     Dosage: 50 MG/MQ Q21 FOR NINE COURSES
     Route: 065
  14. DOXORUBICIN HYDROCHLORIDE [Concomitant]
     Active Substance: DOXORUBICIN HYDROCHLORIDE
     Indication: BRCA1 gene mutation
  15. IRINOTECAN [Concomitant]
     Active Substance: IRINOTECAN
     Indication: Ovarian cancer stage IV
     Dosage: 75 MILLIGRAM DAILY; 1,8 Q21
     Route: 065
     Dates: start: 202010
  16. IRINOTECAN [Concomitant]
     Active Substance: IRINOTECAN
     Indication: BRCA1 gene mutation
     Dosage: ADMINISTERED AT A REDUCED DOSAGE OF 75% OF THE ENTIRE DOSAGE
     Route: 065
     Dates: end: 202102

REACTIONS (8)
  - Hepatotoxicity [Recovered/Resolved]
  - Anaemia [Recovered/Resolved]
  - Thrombocytopenia [Recovered/Resolved]
  - Toxicity to various agents [Recovered/Resolved]
  - Neutropenia [Recovered/Resolved]
  - Gastrointestinal toxicity [Recovered/Resolved]
  - Nausea [Recovered/Resolved]
  - Vomiting [Recovered/Resolved]
